FAERS Safety Report 8801070 (Version 2)
Quarter: 2012Q4

REPORT INFORMATION
  Report Type: Report from Study
  Country: US (occurrence: US)
  Receive Date: 20120921
  Receipt Date: 20121102
  Transmission Date: 20130627
  Serious: Yes (Hospitalization)
  Sender: FDA-Public Use
  Company Number: US-JNJFOC-20120907867

PATIENT
  Age: 16 Year
  Sex: Female
  Weight: 53.4 kg

DRUGS (6)
  1. REMICADE [Suspect]
     Indication: CROHN^S DISEASE
     Route: 042
     Dates: start: 20090116
  2. ZOFRAN [Concomitant]
  3. PHENERGAN [Concomitant]
  4. ANTIBIOTICS [Concomitant]
     Indication: INFLAMMATORY BOWEL DISEASE
  5. 5-ASA [Concomitant]
     Route: 048
  6. BUDESONIDE [Concomitant]

REACTIONS (1)
  - Superior mesenteric artery syndrome [Recovered/Resolved]
